FAERS Safety Report 7006649-4 (Version None)
Quarter: 2010Q3

REPORT INFORMATION
  Report Type: 
  Country: None (occurrence: None)
  Receive Date: 20100921
  Receipt Date: 20100921
  Transmission Date: 20110219
  Serious: Yes (Disabling, Other)
  Sender: FDA-Public Use
  Company Number: None

PATIENT
  Age: 70 Year
  Sex: Male
  Weight: 114.4 kg

DRUGS (1)
  1. ITRACONAZOLE [Suspect]
     Indication: BLASTOMYCOSIS
     Dosage: 200MG BID PO
     Route: 048
     Dates: start: 20100513, end: 20100603

REACTIONS (4)
  - DYSPNOEA EXERTIONAL [None]
  - INCORRECT DOSE ADMINISTERED [None]
  - MEDICATION ERROR [None]
  - WEIGHT INCREASED [None]
